FAERS Safety Report 18745626 (Version 1)
Quarter: 2021Q1

REPORT INFORMATION
  Report Type: Spontaneous
  Country: US (occurrence: US)
  Receive Date: 20210115
  Receipt Date: 20210115
  Transmission Date: 20210419
  Serious: Yes (Life-Threatening, Hospitalization)
  Sender: FDA-Public Use
  Company Number: US-LUPIN PHARMACEUTICALS INC.-2021-00138

PATIENT
  Age: 72 Year
  Sex: Female
  Weight: 54.5 kg

DRUGS (12)
  1. SUFENTANIL [Concomitant]
     Active Substance: SUFENTANIL
     Indication: MAINTENANCE OF ANAESTHESIA
     Dosage: 0.1?0.5 MICROG/KG/HR
     Route: 065
  2. CALCIUM [Suspect]
     Active Substance: CALCIUM
     Indication: VASOPLEGIA SYNDROME
     Dosage: UNK
     Route: 065
  3. ISOFLURANE. [Concomitant]
     Active Substance: ISOFLURANE
     Indication: MAINTENANCE OF ANAESTHESIA
     Dosage: UNK
     Route: 065
  4. PHENYLEPHRINE [Suspect]
     Active Substance: PHENYLEPHRINE HYDROCHLORIDE
     Indication: VASOPLEGIA SYNDROME
     Dosage: UNK
     Route: 065
  5. LOSARTAN. [Concomitant]
     Active Substance: LOSARTAN
     Indication: HYPERTENSION
     Dosage: UNK
     Route: 065
  6. LIDOCAINE. [Concomitant]
     Active Substance: LIDOCAINE
     Indication: MAINTENANCE OF ANAESTHESIA
     Dosage: 2 MILLIGRAM PER MINUTE
     Route: 065
  7. VASOPRESSIN. [Suspect]
     Active Substance: VASOPRESSIN
     Indication: VASOPLEGIA SYNDROME
     Dosage: UNK (0.04 U/MIN) (STOPPED)
     Route: 065
  8. KETAMINE [Concomitant]
     Active Substance: KETAMINE
     Indication: MAINTENANCE OF ANAESTHESIA
     Dosage: 3?5 MICROG/KG/MIN
     Route: 065
  9. EPHEDRINE. [Suspect]
     Active Substance: EPHEDRINE
     Indication: VASOPLEGIA SYNDROME
     Dosage: UNK
     Route: 065
  10. PROPOFOL. [Concomitant]
     Active Substance: PROPOFOL
     Indication: MAINTENANCE OF ANAESTHESIA
     Dosage: UNK (25?50 MICROG/KG/MIN)
     Route: 065
  11. DOBUTAMINE [Suspect]
     Active Substance: DOBUTAMINE HYDROCHLORIDE
     Indication: VASOPLEGIA SYNDROME
     Dosage: UNK (2?4 UG/KG/MIN) (STOPPED)
     Route: 065
  12. TRAMADOL. [Concomitant]
     Active Substance: TRAMADOL
     Indication: ORAL PAIN
     Dosage: UNK
     Route: 065

REACTIONS (1)
  - Therapy non-responder [Unknown]
